FAERS Safety Report 7375082-8 (Version None)
Quarter: 2011Q1

REPORT INFORMATION
  Report Type: 
  Country: None (occurrence: None)
  Receive Date: 20110317
  Receipt Date: 20110307
  Transmission Date: 20110831
  Serious: Yes (Hospitalization, Disabling)
  Sender: FDA-Public Use
  Company Number: 11AU001931

PATIENT
  Sex: Male

DRUGS (2)
  1. DIAZEPAM [Concomitant]
  2. VALPROIC ACID [Suspect]
     Indication: BIPOLAR DISORDER
     Dosage: 4 G, SINGLE

REACTIONS (8)
  - ENCEPHALOPATHY [None]
  - INTENTIONAL OVERDOSE [None]
  - DRUG LEVEL ABOVE THERAPEUTIC [None]
  - HYPERAMMONAEMIA [None]
  - BRAIN OEDEMA [None]
  - BRAIN HERNIATION [None]
  - CEREBRAL INFARCTION [None]
  - OPTIC NEUROPATHY [None]
